FAERS Safety Report 5587699-1 (Version None)
Quarter: 2007Q4

REPORT INFORMATION
  Report Type: 
  Country: None (occurrence: None)
  Receive Date: 20071207
  Receipt Date: 20071112
  Transmission Date: 20080405
  Serious: Yes (Other)
  Sender: FDA-Public Use
  Company Number: 07-488

PATIENT
  Age: 63 Year
  Sex: Male
  Weight: 80.7403 kg

DRUGS (3)
  1. ALEVE [Suspect]
     Indication: ARTHRALGIA
     Dosage: 440 MG, DAILY, ORAL; SEE IMAGE
     Route: 048
     Dates: start: 20071030, end: 20071107
  2. ALEVE [Suspect]
     Indication: ARTHRALGIA
     Dosage: 440 MG, DAILY, ORAL; SEE IMAGE
     Route: 048
     Dates: start: 20071107
  3. BLOOD PRESSURE PILLS [Concomitant]

REACTIONS (1)
  - RECTAL HAEMORRHAGE [None]
